FAERS Safety Report 22627558 (Version 1)
Quarter: 2023Q2

REPORT INFORMATION
  Report Type: Spontaneous
  Country: AU (occurrence: AU)
  Receive Date: 20230622
  Receipt Date: 20230622
  Transmission Date: 20230722
  Serious: Yes (Other)
  Sender: FDA-Public Use
  Company Number: AU-BAXTER-2023BAX024383

PATIENT
  Sex: Female

DRUGS (10)
  1. DOXORUBICIN [Suspect]
     Active Substance: DOXORUBICIN
     Indication: Marginal zone lymphoma
     Dosage: START DATE: AUG-2013, END DATE: NOV-2013, AS A PART OF R-CHOP
     Route: 065
  2. DOXORUBICIN [Suspect]
     Active Substance: DOXORUBICIN
     Dosage: START DATE: NOV-2013, END DATE: MAY-2023, AS A PART OF R-CHOP
     Route: 065
  3. CYCLOPHOSPHAMIDE [Suspect]
     Active Substance: CYCLOPHOSPHAMIDE
     Indication: Marginal zone lymphoma
     Dosage: START DATE: AUG-2013, END DATE: NOV-2013, AS A PART OF R-CHOP
     Route: 065
  4. CYCLOPHOSPHAMIDE [Suspect]
     Active Substance: CYCLOPHOSPHAMIDE
     Dosage: START DATE: NOV-2013, END DATE: MAY-2023, AS A PART OF R-CHOP
     Route: 065
  5. VINCRISTINE [Suspect]
     Active Substance: VINCRISTINE
     Indication: Marginal zone lymphoma
     Dosage: START DATE: AUG-2013, END DATE: NOV-2013, AS A PART OF R-CHOP
     Route: 065
  6. VINCRISTINE [Suspect]
     Active Substance: VINCRISTINE
     Dosage: START DATE: NOV-2013, END DATE: MAY-2023, AS A PART OF R-CHOP
     Route: 065
  7. PREDNISONE [Suspect]
     Active Substance: PREDNISONE
     Indication: Marginal zone lymphoma
     Dosage: START DATE: AUG-2013, END DATE: NOV-2013, AS A PART OF R-CHOP
     Route: 065
  8. PREDNISONE [Suspect]
     Active Substance: PREDNISONE
     Dosage: START DATE: NOV-2013, END DATE: MAY-2023, AS A PART OF R-CHOP
     Route: 065
  9. RITUXIMAB [Suspect]
     Active Substance: RITUXIMAB
     Indication: Marginal zone lymphoma
     Dosage: START DATE: AUG-2013, END DATE: NOV-2013, AS A PART OF R-CHOP
     Route: 065
  10. RITUXIMAB [Suspect]
     Active Substance: RITUXIMAB
     Dosage: START DATE: NOV-2013, END DATE: MAY-2023, AS A PART OF R-CHOP
     Route: 065

REACTIONS (1)
  - Marginal zone lymphoma recurrent [Unknown]
